FAERS Safety Report 23819805 (Version 1)
Quarter: 2024Q2

REPORT INFORMATION
  Report Type: Other
  Country: US (occurrence: US)
  Receive Date: 20240506
  Receipt Date: 20240506
  Transmission Date: 20240716
  Serious: No
  Sender: FDA-Public Use
  Company Number: None

PATIENT

DRUGS (2)
  1. BIMATOPROST [Suspect]
     Active Substance: BIMATOPROST
     Indication: Eyelash thickening
     Dosage: DROP ON AN APPLICATOR ON EACH EYELASH TOPICALLY
     Route: 061
  2. BIMATOPROST [Suspect]
     Active Substance: BIMATOPROST
     Dosage: DROP ON AN APPLICATOR ON EACH EYELASH TOPICALLY
     Route: 061
     Dates: start: 202401

REACTIONS (4)
  - Product quality issue [Unknown]
  - Vision blurred [Recovering/Resolving]
  - Eye pain [Unknown]
  - Eye irritation [Recovered/Resolved]
